FAERS Safety Report 19931008 (Version 1)
Quarter: 2021Q4

REPORT INFORMATION
  Report Type: Spontaneous
  Country: US (occurrence: US)
  Receive Date: 20211007
  Receipt Date: 20211007
  Transmission Date: 20220303
  Serious: Yes (Other)
  Sender: FDA-Public Use
  Company Number: US-PFIZER INC-202101286082

PATIENT
  Age: 72 Year
  Sex: Male

DRUGS (1)
  1. VYNDAMAX [Suspect]
     Active Substance: TAFAMIDIS
     Indication: Amyloidosis
     Dosage: 61 MG

REACTIONS (7)
  - Cardiac amyloidosis [Unknown]
  - Syncope [Unknown]
  - Essential hypertension [Unknown]
  - Coronary artery disease [Unknown]
  - Endocrine disorder [Unknown]
  - Metabolic disorder [Unknown]
  - Dyslipidaemia [Unknown]
